FAERS Safety Report 12213896 (Version 1)
Quarter: 2016Q1

REPORT INFORMATION
  Report Type: Spontaneous
  Country: US (occurrence: None)
  Receive Date: 20160325
  Receipt Date: 20160325
  Transmission Date: 20160526
  Serious: Yes (Hospitalization)
  Sender: FDA-Public Use
  Company Number: None

PATIENT
  Age: 15 Year
  Sex: Female
  Weight: 51.5 kg

DRUGS (1)
  1. CYCLODEXTRIN 200 MG/ML JANSSEN [Suspect]
     Active Substance: CYCLODEXTRINS
     Indication: NIEMANN-PICK DISEASE
     Dosage: 104 GRAMS Q2 WEEKS IV
     Route: 042
     Dates: start: 20160319

REACTIONS (3)
  - Bacteraemia [None]
  - Klebsiella infection [None]
  - Product contamination [None]

NARRATIVE: CASE EVENT DATE: 20160319
